FAERS Safety Report 25591058 (Version 6)
Quarter: 2025Q3

REPORT INFORMATION
  Report Type: Spontaneous
  Country: US (occurrence: US)
  Receive Date: 20250722
  Receipt Date: 20250825
  Transmission Date: 20251021
  Serious: No
  Sender: PFIZER
  Company Number: US-PFIZER INC-202500145925

PATIENT
  Age: 68 Year
  Sex: Female
  Weight: 68.04 kg

DRUGS (3)
  1. BICILLIN L-A [Suspect]
     Active Substance: PENICILLIN G BENZATHINE
     Indication: Syphilis
     Dosage: 4 ML, EACH (2 ML) DOSE ONE DOSE TO THE RIGHT BUTTOCK, ONE DOSE TO THE LEFT
     Route: 030
     Dates: start: 20241218, end: 20241218
  2. BICILLIN L-A [Suspect]
     Active Substance: PENICILLIN G BENZATHINE
     Dosage: 4 ML (2 ML IN EACH BUTTOCK)
     Route: 030
     Dates: start: 20241223, end: 20241223
  3. BICILLIN L-A [Suspect]
     Active Substance: PENICILLIN G BENZATHINE
     Dosage: 4 ML (2 ML IN EACH BUTTOCK)
     Route: 030
     Dates: start: 20241230, end: 20241230

REACTIONS (2)
  - Recalled product administered [Recovered/Resolved]
  - Off label use [Recovered/Resolved]

NARRATIVE: CASE EVENT DATE: 20241218
